FAERS Safety Report 9780871 (Version 1)
Quarter: 2013Q4

REPORT INFORMATION
  Report Type: Spontaneous
  Country: BR (occurrence: BR)
  Receive Date: 20131224
  Receipt Date: 20131224
  Transmission Date: 20140711
  Serious: Yes (Hospitalization, Other)
  Sender: FDA-Public Use
  Company Number: BR-ASTRAZENECA-2013SE92046

PATIENT
  Age: 736 Month
  Sex: Female
  Weight: 99 kg

DRUGS (6)
  1. OMEPRAZOLE [Suspect]
     Indication: GASTRITIS PROPHYLAXIS
     Dosage: DAILY
     Route: 048
     Dates: start: 2009
  2. TREZOR [Suspect]
     Indication: BLOOD CHOLESTEROL INCREASED
     Dosage: DAILY
     Route: 048
     Dates: start: 2009
  3. BRILINTA [Suspect]
     Indication: CHEST PAIN
     Dosage: DAILY
     Route: 048
     Dates: start: 2009
  4. AMYTRIL [Concomitant]
     Indication: CEREBROVASCULAR ACCIDENT PROPHYLAXIS
     Dosage: DAILY
     Route: 048
     Dates: start: 2009
  5. INSULIN [Concomitant]
     Indication: DIABETES MELLITUS
     Dosage: DAILY
     Route: 058
     Dates: start: 1995
  6. BENICAR [Concomitant]
     Indication: HYPERTENSION
     Dosage: DAILY
     Route: 048
     Dates: start: 2009

REACTIONS (7)
  - Diabetic foot infection [Recovered/Resolved]
  - Weight increased [Not Recovered/Not Resolved]
  - Anaemia [Unknown]
  - Renal impairment [Unknown]
  - Thyroid disorder [Unknown]
  - Bone disorder [Unknown]
  - Off label use [Not Recovered/Not Resolved]
